FAERS Safety Report 5844366-4 (Version None)
Quarter: 2008Q3

REPORT INFORMATION
  Report Type: 
  Country: None (occurrence: None)
  Receive Date: 20080808
  Receipt Date: 20080727
  Transmission Date: 20090109
  Serious: Yes (Death, Hospitalization)
  Sender: FDA-Public Use
  Company Number: FABR-1000347

PATIENT
  Age: 50 Year
  Sex: Male
  Weight: 58 kg

DRUGS (7)
  1. FABRAZYME [Suspect]
     Indication: FABRY'S DISEASE
     Dosage: 70 MG, INTRAVENOUS
     Route: 042
     Dates: start: 20060713, end: 20080724
  2. FOLIC ACID [Concomitant]
  3. VITAMIN B COMPLEX CAP [Concomitant]
  4. CALCIUM CARBONATE (CALCIUM CARBONATE) [Concomitant]
  5. AMIODARON GF (AMIODARONE) [Concomitant]
  6. CYCLOSPORINE [Concomitant]
  7. PREDNISONE [Concomitant]

REACTIONS (11)
  - AGGRESSION [None]
  - ANOREXIA [None]
  - ANXIETY [None]
  - CONFUSIONAL STATE [None]
  - DEPRESSION [None]
  - GASTRITIS [None]
  - HALLUCINATION [None]
  - HEADACHE [None]
  - NAUSEA [None]
  - PNEUMONIA [None]
  - RENAL TRANSPLANT [None]
